FAERS Safety Report 10252085 (Version 1)
Quarter: 2014Q2

REPORT INFORMATION
  Report Type: Spontaneous
  Country: IR (occurrence: IR)
  Receive Date: 20140623
  Receipt Date: 20140623
  Transmission Date: 20141212
  Serious: Yes (Other)
  Sender: FDA-Public Use
  Company Number: PHHY2014IR075204

PATIENT
  Age: 50 Year
  Sex: Female

DRUGS (1)
  1. CATAFLAM [Suspect]
     Dosage: 1 DF, UNK
     Dates: start: 20140613, end: 20140613

REACTIONS (1)
  - Hypertensive crisis [Recovered/Resolved]
